FAERS Safety Report 5936515-4 (Version None)
Quarter: 2008Q4

REPORT INFORMATION
  Report Type: 
  Country: None (occurrence: None)
  Receive Date: 20081020
  Receipt Date: 20080725
  Transmission Date: 20090506
  Serious: Yes (Other)
  Sender: FDA-Public Use
  Company Number: US-WYE-H05271508

PATIENT
  Age: 51 Year
  Sex: Female
  Weight: 71.73 kg

DRUGS (2)
  1. ADVIL PM [Suspect]
     Indication: FIBROMYALGIA
     Dosage: 2 CAPSULE 1X PER 1 DAY, ORAL
     Route: 048
     Dates: start: 20080724, end: 20080724
  2. SYNTHROID [Concomitant]

REACTIONS (5)
  - CONDITION AGGRAVATED [None]
  - DRY MOUTH [None]
  - NASAL CONGESTION [None]
  - NERVE INJURY [None]
  - RESTLESSNESS [None]
